FAERS Safety Report 5170083-2 (Version None)
Quarter: 2006Q4

REPORT INFORMATION
  Report Type: 
  Country: None (occurrence: None)
  Receive Date: 20061212
  Receipt Date: 20061130
  Transmission Date: 20070319
  Serious: Yes (Hospitalization, Other)
  Sender: FDA-Public Use
  Company Number: US-ELI_LILLY_AND_COMPANY-US200612000232

PATIENT
  Age: 47 Year
  Sex: Female

DRUGS (2)
  1. ZYPREXA [Suspect]
     Indication: EMOTIONAL DISORDER
     Dosage: 10 MG, DAILY (1/D)
     Route: 048
     Dates: start: 19920101
  2. ANTIHYPERTENSIVES [Concomitant]
     Indication: HYPERTENSION

REACTIONS (5)
  - DIABETES MELLITUS [None]
  - HYPERGLYCAEMIA [None]
  - NEOPLASM MALIGNANT [None]
  - OESOPHAGECTOMY [None]
  - SOMNOLENCE [None]
